FAERS Safety Report 10226674 (Version 2)
Quarter: 2014Q3

REPORT INFORMATION
  Report Type: Spontaneous
  Country: US (occurrence: US)
  Receive Date: 20140609
  Receipt Date: 20140709
  Transmission Date: 20150326
  Serious: Yes (Life-Threatening, Hospitalization, Other)
  Sender: FDA-Public Use
  Company Number: US-ROCHE-1414362

PATIENT
  Age: 52 Year
  Sex: Female
  Weight: 108.05 kg

DRUGS (32)
  1. ACTEMRA [Suspect]
     Active Substance: TOCILIZUMAB
     Indication: RHEUMATOID ARTHRITIS
     Dosage: MOST RECENT DOSE PRIOR TO SAE 21/FEB/2014
     Route: 058
     Dates: start: 201402, end: 201404
  2. KETOROLAC [Concomitant]
     Active Substance: KETOROLAC\KETOROLAC TROMETHAMINE
     Dosage: 30 MG/ML
     Route: 065
  3. DIGOXIN. [Concomitant]
     Active Substance: DIGOXIN
     Route: 065
     Dates: start: 20140408
  4. METOPROLOL SUCCINATE. [Concomitant]
     Active Substance: METOPROLOL SUCCINATE
     Route: 065
     Dates: start: 20140416
  5. GABAPENTIN. [Concomitant]
     Active Substance: GABAPENTIN
     Route: 048
     Dates: start: 20140416
  6. PREDNISONE. [Suspect]
     Active Substance: PREDNISONE
     Indication: RHEUMATOID ARTHRITIS
     Route: 048
     Dates: start: 20140404
  7. ALBUTEROL. [Concomitant]
     Active Substance: ALBUTEROL
     Dosage: AS NEEDED
     Route: 065
  8. OXYCODONE [Concomitant]
     Active Substance: OXYCODONE
     Indication: PAIN
     Route: 048
  9. PROPRANOLOL ER [Concomitant]
     Route: 048
     Dates: start: 20140310
  10. RANITIDINE [Concomitant]
     Active Substance: RANITIDINE\RANITIDINE HYDROCHLORIDE
     Route: 065
     Dates: start: 20140110
  11. METOCLOPRAMIDE. [Concomitant]
     Active Substance: METOCLOPRAMIDE
     Route: 065
     Dates: start: 20131112
  12. WARFARIN SODIUM. [Concomitant]
     Active Substance: WARFARIN SODIUM
     Route: 065
  13. HYDROCODONE/ACETAMINOPHEN [Concomitant]
     Active Substance: ACETAMINOPHEN\HYDROCODONE
     Route: 065
     Dates: start: 20140311
  14. ALBUTEROL. [Concomitant]
     Active Substance: ALBUTEROL
     Route: 065
  15. VOLTAREN [Concomitant]
     Active Substance: DICLOFENAC SODIUM
     Dosage: 1%
     Route: 065
  16. TRIAMTERENE. [Concomitant]
     Active Substance: TRIAMTERENE
     Route: 065
     Dates: start: 20140110
  17. KLOR-CON [Concomitant]
     Active Substance: POTASSIUM CHLORIDE
     Dosage: 10 MEQ
     Route: 065
     Dates: start: 20140108
  18. RHINOCORT AQUA [Concomitant]
     Active Substance: BUDESONIDE
     Route: 045
     Dates: start: 20121220
  19. DIAZEPAM. [Concomitant]
     Active Substance: DIAZEPAM
     Route: 048
  20. TOPAMAX [Concomitant]
     Active Substance: TOPIRAMATE
     Route: 048
  21. PRAVASTATIN [Concomitant]
     Active Substance: PRAVASTATIN\PRAVASTATIN SODIUM
     Route: 048
     Dates: start: 20140405
  22. RIZATRIPTAN [Concomitant]
     Active Substance: RIZATRIPTAN
     Route: 065
     Dates: start: 20131210
  23. TOPIRAMATE. [Concomitant]
     Active Substance: TOPIRAMATE
     Route: 065
     Dates: start: 20130813
  24. IBUPROFEN. [Concomitant]
     Active Substance: IBUPROFEN
     Dosage: 100/5 ML SUSPENSION
     Route: 065
     Dates: start: 20130419
  25. AMOXI-CLAVULAN [Concomitant]
     Route: 065
  26. VALTREX [Concomitant]
     Active Substance: VALACYCLOVIR HYDROCHLORIDE
     Route: 048
  27. WARFARIN SODIUM. [Concomitant]
     Active Substance: WARFARIN SODIUM
     Route: 048
  28. PROCHLORPERAZINE. [Concomitant]
     Active Substance: PROCHLORPERAZINE
     Route: 065
  29. CEFPODOXIME PROXETIL. [Concomitant]
     Active Substance: CEFPODOXIME PROXETIL
     Route: 065
     Dates: start: 20140425
  30. ONDANSETRON [Concomitant]
     Active Substance: ONDANSETRON
     Route: 065
     Dates: start: 20140425
  31. METHADONE [Concomitant]
     Active Substance: METHADONE HYDROCHLORIDE
     Route: 048
  32. COMBIVENT [Concomitant]
     Active Substance: ALBUTEROL SULFATE\IPRATROPIUM BROMIDE
     Dosage: 2 PUFFS
     Route: 065

REACTIONS (8)
  - Pneumonia [Not Recovered/Not Resolved]
  - Pulmonary embolism [Recovered/Resolved with Sequelae]
  - Cardiac failure [Not Recovered/Not Resolved]
  - Sinusitis [Recovered/Resolved]
  - Duodenal ulcer perforation [Recovered/Resolved with Sequelae]
  - Pulmonary embolism [Not Recovered/Not Resolved]
  - Ear infection [Recovered/Resolved]
  - Clostridium difficile colitis [Recovered/Resolved with Sequelae]

NARRATIVE: CASE EVENT DATE: 201404
